FAERS Safety Report 4470401-4 (Version None)
Quarter: 2004Q3

REPORT INFORMATION
  Report Type: 
  Country: None (occurrence: None)
  Receive Date: 20040910
  Receipt Date: 20040723
  Transmission Date: 20050211
  Serious: Yes (Hospitalization, Disabling)
  Sender: FDA-Public Use
  Company Number: 2004-00304

PATIENT
  Age: 65 Year
  Sex: Male
  Weight: 78.5 kg

DRUGS (2)
  1. VELCADE [Suspect]
     Indication: MULTIPLE MYELOMA
     Dosage: 1.3 MG/M2 BIW, IV BOLUS; SEE IMAGE
     Route: 040
     Dates: start: 20030805, end: 20030901
  2. VELCADE [Suspect]
     Indication: MULTIPLE MYELOMA
     Dosage: 1.3 MG/M2 BIW, IV BOLUS; SEE IMAGE
     Route: 040
     Dates: start: 20030901

REACTIONS (2)
  - NEUROPATHY PERIPHERAL [None]
  - PNEUMONIA [None]
